FAERS Safety Report 8030778-X (Version None)
Quarter: 2011Q4

REPORT INFORMATION
  Report Type: 
  Country: None (occurrence: None)
  Receive Date: 20111202
  Receipt Date: 20090901
  Transmission Date: 20120403
  Serious: Yes (Hospitalization)
  Sender: FDA-Public Use
  Company Number: 2009SP023513

PATIENT
  Age: 45 Year
  Sex: Female

DRUGS (6)
  1. VITAMIN C [Concomitant]
  2. ACETAMINOPHEN [Concomitant]
  3. PRILOSEC [Concomitant]
  4. VITAMIN B COMPLEX CAP [Concomitant]
  5. NUVARING [Suspect]
     Indication: CONTRACEPTION
     Dosage: VAG
     Route: 067
     Dates: start: 20050301, end: 20061219
  6. MULTI-VITAMIN [Concomitant]

REACTIONS (5)
  - BRONCHITIS [None]
  - ANAEMIA [None]
  - PULMONARY EMBOLISM [None]
  - DEEP VEIN THROMBOSIS [None]
  - MIGRAINE [None]
